FAERS Safety Report 21459187 (Version 3)
Quarter: 2022Q4

REPORT INFORMATION
  Report Type: Spontaneous
  Country: US (occurrence: US)
  Receive Date: 20221014
  Receipt Date: 20221122
  Transmission Date: 20230113
  Serious: No
  Sender: FDA-Public Use
  Company Number: US-LUPIN PHARMACEUTICALS INC.-2022-11959

PATIENT

DRUGS (2)
  1. CEFDINIR [Suspect]
     Active Substance: CEFDINIR
     Indication: Prophylaxis
     Dosage: 300 MILLIGRAM, BID
     Route: 065
     Dates: start: 20221011
  2. CEFDINIR [Suspect]
     Active Substance: CEFDINIR
     Indication: Animal bite

REACTIONS (2)
  - Product prescribing issue [Unknown]
  - No adverse event [Unknown]
